FAERS Safety Report 10551186 (Version 1)
Quarter: 2014Q4

REPORT INFORMATION
  Report Type: Spontaneous
  Country: SE (occurrence: None)
  Receive Date: 20141027
  Receipt Date: 20141027
  Transmission Date: 20150529
  Serious: Yes (Disabling, Other)
  Sender: FDA-Public Use
  Company Number: B1018568A

PATIENT
  Age: 50 Year
  Sex: Male

DRUGS (4)
  1. TIVICAY [Suspect]
     Active Substance: DOLUTEGRAVIR SODIUM
     Indication: HIV INFECTION
     Dates: start: 2014
  2. CRESTOR [Concomitant]
     Active Substance: ROSUVASTATIN CALCIUM
  3. KIVEXA [Suspect]
     Active Substance: ABACAVIR SULFATE\LAMIVUDINE
     Indication: HIV INFECTION
  4. TRUVADA (EMTRICITIBINE+TENOFOVIR DISOPROXIL FUMARATE) [Concomitant]

REACTIONS (8)
  - Rash [None]
  - Pruritus [None]
  - Skin fragility [None]
  - Porphyria non-acute [None]
  - Blister [None]
  - Hyperaesthesia [None]
  - Alanine aminotransferase increased [None]
  - Skin exfoliation [None]

NARRATIVE: CASE EVENT DATE: 2014
